FAERS Safety Report 8701671 (Version 2)
Quarter: 2013Q4

REPORT INFORMATION
  Report Type: Spontaneous
  Country: US (occurrence: US)
  Receive Date: 20120803
  Receipt Date: 20131031
  Transmission Date: 20140711
  Serious: Yes (Other)
  Sender: FDA-Public Use
  Company Number: US-009507513-1207USA011980

PATIENT
  Age: 49 Year
  Sex: Male

DRUGS (1)
  1. ELOCON [Suspect]
     Route: 062

REACTIONS (4)
  - Product quality issue [Unknown]
  - Product substitution issue [Unknown]
  - Product container issue [Unknown]
  - Drug ineffective [Unknown]
